FAERS Safety Report 5130232-9 (Version None)
Quarter: 2006Q4

REPORT INFORMATION
  Report Type: 
  Country: None (occurrence: None)
  Receive Date: 20061019
  Receipt Date: 20061010
  Transmission Date: 20070319
  Serious: Yes (Life-Threatening, Other)
  Sender: FDA-Public Use
  Company Number: US-JNJFOC-20060905590

PATIENT
  Sex: Female
  Weight: 105.69 kg

DRUGS (2)
  1. ORTHO EVRA [Suspect]
     Indication: CONTRACEPTION
     Route: 062
  2. TYLOX [Concomitant]

REACTIONS (6)
  - CEREBRAL ARTERY EMBOLISM [None]
  - CEREBRAL INFARCTION [None]
  - CONVULSION [None]
  - DISORIENTATION [None]
  - HEADACHE [None]
  - VISUAL DISTURBANCE [None]
